FAERS Safety Report 19923188 (Version 5)
Quarter: 2022Q3

REPORT INFORMATION
  Report Type: Spontaneous
  Country: US (occurrence: US)
  Receive Date: 20211006
  Receipt Date: 20220806
  Transmission Date: 20221027
  Serious: No
  Sender: FDA-Public Use
  Company Number: US-SA-SAC20211004000652

PATIENT
  Age: 28 Year
  Sex: Male

DRUGS (7)
  1. DUPIXENT [Suspect]
     Active Substance: DUPILUMAB
     Indication: Dermatitis atopic
     Dosage: UNK, QOW
     Dates: start: 20190109, end: 20211205
  2. DUPIXENT [Suspect]
     Active Substance: DUPILUMAB
     Dosage: 30 MG
     Route: 058
     Dates: start: 20210728
  3. DUPIXENT [Suspect]
     Active Substance: DUPILUMAB
     Dosage: 300 MG, OTHER
     Route: 058
     Dates: start: 202101
  4. DUPIXENT [Suspect]
     Active Substance: DUPILUMAB
     Dosage: UNK, Q4W
  5. TRIAMCINOLONE [Concomitant]
     Active Substance: TRIAMCINOLONE
     Indication: Dermatitis atopic
     Route: 061
  6. CELECOXIB [Concomitant]
     Active Substance: CELECOXIB
  7. PROAIR HFA [Concomitant]
     Active Substance: ALBUTEROL SULFATE
     Indication: Asthma

REACTIONS (4)
  - Fatigue [Unknown]
  - Product dose omission issue [Unknown]
  - Inappropriate schedule of product administration [Unknown]
  - Product use issue [Unknown]

NARRATIVE: CASE EVENT DATE: 20210414
